FAERS Safety Report 15924531 (Version 1)
Quarter: 2019Q1

REPORT INFORMATION
  Report Type: Spontaneous
  Country: JP (occurrence: JP)
  Receive Date: 20190205
  Receipt Date: 20190205
  Transmission Date: 20190417
  Serious: Yes (Death, Other)
  Sender: FDA-Public Use
  Company Number: JP-MYLANLABS-2019M1010771

PATIENT
  Sex: Male

DRUGS (7)
  1. EPIRUBICIN [Concomitant]
     Active Substance: EPIRUBICIN
     Indication: DIFFUSE LARGE B-CELL LYMPHOMA
     Dosage: THREE ROUNDS OF POLYCHEMOTHERAPY
     Route: 065
     Dates: start: 2010, end: 2010
  2. RITUXIMAB. [Concomitant]
     Active Substance: RITUXIMAB
     Indication: DIFFUSE LARGE B-CELL LYMPHOMA
     Dosage: THREE ROUNDS OF POLYCHEMOTHERAPY
     Route: 065
     Dates: start: 2010, end: 2010
  3. VINCRISTINE [Concomitant]
     Active Substance: VINCRISTINE
     Indication: DIFFUSE LARGE B-CELL LYMPHOMA
     Dosage: THREE ROUNDS OF POLYCHEMOTHERAPY
     Route: 065
     Dates: start: 2010, end: 2010
  4. PREDNISONE. [Concomitant]
     Active Substance: PREDNISONE
     Indication: DIFFUSE LARGE B-CELL LYMPHOMA
     Dosage: THREE ROUNDS OF POLYCHEMOTHERAPY
     Route: 065
     Dates: start: 2010, end: 2010
  5. CYCLOPHOSPHAMIDE. [Suspect]
     Active Substance: CYCLOPHOSPHAMIDE
     Indication: DIFFUSE LARGE B-CELL LYMPHOMA
     Dosage: THREE ROUNDS OF POLYCHEMOTHERAPY
     Route: 065
     Dates: start: 2010, end: 2010
  6. PREDNISONE. [Concomitant]
     Active Substance: PREDNISONE
     Indication: T-CELL PROLYMPHOCYTIC LEUKAEMIA
     Dosage: ADMINISTERED WITH ETOPOSIDE
     Route: 065
     Dates: start: 2017
  7. ETOPOSIDE. [Suspect]
     Active Substance: ETOPOSIDE
     Indication: T-CELL PROLYMPHOCYTIC LEUKAEMIA
     Route: 048
     Dates: start: 2017

REACTIONS (4)
  - T-cell prolymphocytic leukaemia [Fatal]
  - 5q minus syndrome [Fatal]
  - Renal failure [Unknown]
  - Tumour lysis syndrome [Unknown]
